FAERS Safety Report 4689847-4 (Version None)
Quarter: 2005Q2

REPORT INFORMATION
  Report Type: 
  Country: None (occurrence: None)
  Receive Date: 20050608
  Receipt Date: 20050209
  Transmission Date: 20051028
  Serious: No
  Sender: FDA-Public Use
  Company Number: 2005-BP-02045BP

PATIENT
  Age: 70 Year
  Sex: Female

DRUGS (8)
  1. SPIRIVA [Suspect]
     Indication: CHRONIC OBSTRUCTIVE PULMONARY DISEASE
     Dosage: 18 MG (18 MG, QD), IH
     Route: 055
     Dates: start: 20040601
  2. SPIRIVA [Suspect]
  3. PLETAL [Concomitant]
  4. LIPITOR [Concomitant]
  5. ADVAIR DISKUS 100/50 [Concomitant]
  6. FOSAMAX [Concomitant]
  7. PROZAC [Concomitant]
  8. OTHER INHALERS [Concomitant]

REACTIONS (1)
  - DYSPNOEA [None]
